FAERS Safety Report 18495345 (Version 1)
Quarter: 2020Q4

REPORT INFORMATION
  Report Type: Spontaneous
  Country: US (occurrence: US)
  Receive Date: 20201111
  Receipt Date: 20201111
  Transmission Date: 20210114
  Serious: Yes (Other)
  Sender: FDA-Public Use
  Company Number: None

PATIENT
  Age: 42 Year
  Sex: Female

DRUGS (3)
  1. MULTIVITAMIN [Concomitant]
     Active Substance: VITAMINS
  2. VITAMIN D [Concomitant]
     Active Substance: VITAMIN D NOS
  3. INVEGA SUSTENNA [Suspect]
     Active Substance: PALIPERIDONE PALMITATE
     Indication: PSYCHOTIC DISORDER
     Dates: start: 20161116, end: 20200211

REACTIONS (17)
  - Incontinence [None]
  - Feeling abnormal [None]
  - Depression [None]
  - Hallucination [None]
  - Clumsiness [None]
  - Arthralgia [None]
  - Chest pain [None]
  - Flatulence [None]
  - Palpitations [None]
  - Malaise [None]
  - Insomnia [None]
  - Blood cholesterol increased [None]
  - Dry skin [None]
  - Blood glucose increased [None]
  - Diarrhoea [None]
  - Nausea [None]
  - Anxiety [None]

NARRATIVE: CASE EVENT DATE: 20161116
